FAERS Safety Report 9548591 (Version 1)
Quarter: 2013Q3

REPORT INFORMATION
  Report Type: Spontaneous
  Country: US (occurrence: US)
  Receive Date: 20130924
  Receipt Date: 20130924
  Transmission Date: 20140515
  Serious: Yes (Death, Hospitalization)
  Sender: FDA-Public Use
  Company Number: US-ROCHE-1280025

PATIENT
  Age: 66 Year
  Sex: Male

DRUGS (2)
  1. XELODA [Suspect]
     Indication: ANAL CANCER
     Route: 065
  2. MORPHINE [Concomitant]

REACTIONS (1)
  - Disease progression [Fatal]
